FAERS Safety Report 16027897 (Version 1)
Quarter: 2019Q1

REPORT INFORMATION
  Report Type: Spontaneous
  Country: US (occurrence: US)
  Receive Date: 20190304
  Receipt Date: 20190304
  Transmission Date: 20190418
  Serious: No
  Sender: FDA-Public Use
  Company Number: US-IMPAX LABORATORIES, LLC-2018-IPXL-01059

PATIENT
  Age: 77 Year
  Sex: Female

DRUGS (9)
  1. OMEPRAZOLE. [Concomitant]
     Active Substance: OMEPRAZOLE
     Indication: GASTROOESOPHAGEAL REFLUX DISEASE
     Dosage: UNK
     Route: 048
  2. RYTARY [Interacting]
     Active Substance: CARBIDOPA\LEVODOPA
     Dosage: 23.75 MG/95 MG, 3 CAPSULES 3 TIMES DAILY
     Route: 048
  3. RYTARY [Interacting]
     Active Substance: CARBIDOPA\LEVODOPA
     Dosage: 23.75 MG/95 MG, 3 CAP AT 6 AM, 3 CAP AT NOON, 2 CAP AT 6 PM
     Route: 048
  4. PRAVASTATIN. [Concomitant]
     Active Substance: PRAVASTATIN
     Indication: HYPERCHOLESTEROLAEMIA
     Dosage: UNK
     Route: 048
  5. AMOXICILLIN. [Interacting]
     Active Substance: AMOXICILLIN
     Indication: URINARY TRACT INFECTION
     Dosage: UNK, FOR ONE DAY
     Route: 065
     Dates: start: 201803
  6. RYTARY [Suspect]
     Active Substance: CARBIDOPA\LEVODOPA
     Indication: PARKINSON^S DISEASE
     Dosage: 23.75 MG/95 MG, 2 CAPSULES 3 TIMES DAILY
     Route: 048
     Dates: start: 201803
  7. CLOPIDOGREL [Concomitant]
     Active Substance: CLOPIDOGREL BISULFATE
     Indication: ANTICOAGULANT THERAPY
     Dosage: UNK
     Route: 048
  8. RYTARY [Interacting]
     Active Substance: CARBIDOPA\LEVODOPA
     Dosage: 23.75 MG/95 MG, 2 CAPSULES 3 TIMES DAILY
     Route: 048
     Dates: start: 20180324
  9. LEVOTHYROXINE. [Concomitant]
     Active Substance: LEVOTHYROXINE
     Indication: THYROID HORMONES DECREASED
     Dosage: UNK
     Route: 048

REACTIONS (9)
  - Orthostatic hypotension [Unknown]
  - Feeling cold [Recovering/Resolving]
  - Anxiety [Not Recovered/Not Resolved]
  - Tremor [Not Recovered/Not Resolved]
  - Treatment noncompliance [Unknown]
  - Drug interaction [Unknown]
  - Chills [Recovering/Resolving]
  - Therapeutic response shortened [Unknown]
  - Urinary tract infection [Recovering/Resolving]

NARRATIVE: CASE EVENT DATE: 201803
